FAERS Safety Report 17259381 (Version 2)
Quarter: 2020Q1

REPORT INFORMATION
  Report Type: Spontaneous
  Country: US (occurrence: US)
  Receive Date: 20200110
  Receipt Date: 20200129
  Transmission Date: 20200409
  Serious: Yes (Death, Other)
  Sender: FDA-Public Use
  Company Number: US-SUNOVION-2020SUN000026

PATIENT
  Age: 83 Year
  Sex: Male

DRUGS (4)
  1. LONHALA MAGNAIR [Suspect]
     Active Substance: GLYCOPYRROLATE
     Indication: CHRONIC OBSTRUCTIVE PULMONARY DISEASE
     Dosage: UNK, QD
     Route: 055
     Dates: start: 20190404, end: 20191217
  2. PROAIR HFA [Concomitant]
     Active Substance: ALBUTEROL SULFATE
     Indication: CHRONIC OBSTRUCTIVE PULMONARY DISEASE
     Dosage: UNK
     Dates: start: 20161019, end: 20191217
  3. PERFOROMIST [Concomitant]
     Active Substance: FORMOTEROL FUMARATE DIHYDRATE
     Indication: CHRONIC OBSTRUCTIVE PULMONARY DISEASE
     Dosage: UNK
     Dates: start: 20191001, end: 20191217
  4. DUONEB [Concomitant]
     Active Substance: ALBUTEROL SULFATE\IPRATROPIUM BROMIDE
     Indication: CHRONIC OBSTRUCTIVE PULMONARY DISEASE
     Dosage: UNK
     Dates: start: 20191001, end: 20191217

REACTIONS (2)
  - Death [Fatal]
  - Off label use [Unknown]

NARRATIVE: CASE EVENT DATE: 20190404
